FAERS Safety Report 15754746 (Version 2)
Quarter: 2019Q3

REPORT INFORMATION
  Report Type: Report from Study
  Country: CA (occurrence: CA)
  Receive Date: 20181224
  Receipt Date: 20190722
  Transmission Date: 20191004
  Serious: Yes (Other)
  Sender: FDA-Public Use
  Company Number: CA-ROCHE-2219754

PATIENT
  Age: 30 Year
  Sex: Male

DRUGS (8)
  1. RITUXAN [Suspect]
     Active Substance: RITUXIMAB
     Indication: VASCULITIS
     Route: 042
     Dates: start: 20170426
  2. RITUXAN [Suspect]
     Active Substance: RITUXIMAB
     Indication: GRANULOMATOSIS WITH POLYANGIITIS
  3. PREDNISOLONE ACETATE. [Suspect]
     Active Substance: PREDNISOLONE ACETATE
     Indication: PRODUCT USED FOR UNKNOWN INDICATION
     Route: 065
     Dates: start: 201504
  4. FOLIC ACID. [Concomitant]
     Active Substance: FOLIC ACID
  5. RITUXAN [Suspect]
     Active Substance: RITUXIMAB
     Indication: SCLERITIS
  6. ACTONEL [Concomitant]
     Active Substance: RISEDRONATE SODIUM
  7. PREDNISONE. [Concomitant]
     Active Substance: PREDNISONE
  8. CELLCEPT [Suspect]
     Active Substance: MYCOPHENOLATE MOFETIL\MYCOPHENOLATE MOFETIL HYDROCHLORIDE
     Indication: PRODUCT USED FOR UNKNOWN INDICATION
     Route: 065
     Dates: start: 201610

REACTIONS (8)
  - Sinusitis [Unknown]
  - Eye disorder [Unknown]
  - Scleritis [Not Recovered/Not Resolved]
  - Drug ineffective [Unknown]
  - Blindness unilateral [Unknown]
  - Granulomatosis with polyangiitis [Not Recovered/Not Resolved]
  - Photophobia [Unknown]
  - Headache [Unknown]

NARRATIVE: CASE EVENT DATE: 201804
